FAERS Safety Report 8610800-X (Version None)
Quarter: 2012Q3

REPORT INFORMATION
  Report Type: 
  Country: None (occurrence: None)
  Receive Date: 20120822
  Receipt Date: 20120813
  Transmission Date: 20120928
  Serious: Yes (Hospitalization)
  Sender: FDA-Public Use
  Company Number: US-ASTRAZENECA-2012SE50508

PATIENT
  Age: 68 Year
  Sex: Female

DRUGS (2)
  1. PULMICORT [Suspect]
     Dosage: GENERIC
     Route: 055
  2. PULMICORT [Suspect]
     Route: 055

REACTIONS (2)
  - LUNG DISORDER [None]
  - OFF LABEL USE [None]
